FAERS Safety Report 6709974-7 (Version None)
Quarter: 2010Q2

REPORT INFORMATION
  Report Type: 
  Country: None (occurrence: None)
  Receive Date: 20100503
  Receipt Date: 20100503
  Transmission Date: 20101027
  Serious: No
  Sender: FDA-Public Use
  Company Number: None

PATIENT
  Age: 3 Year
  Sex: Male
  Weight: 11.3399 kg

DRUGS (2)
  1. TYLENOL (CAPLET) [Suspect]
     Indication: ORAL PAIN
     Dosage: 5 ML EVERY 4 HRS PRN PO, ONLY ONE DOSE GIVEN
     Route: 048
     Dates: start: 20100429, end: 20100429
  2. TYLENOL (CAPLET) [Suspect]
     Indication: TEETHING
     Dosage: 5 ML EVERY 4 HRS PRN PO, ONLY ONE DOSE GIVEN
     Route: 048
     Dates: start: 20100429, end: 20100429

REACTIONS (4)
  - DIARRHOEA [None]
  - POOR QUALITY DRUG ADMINISTERED [None]
  - PRODUCT QUALITY ISSUE [None]
  - VOMITING [None]
